FAERS Safety Report 6147776-3 (Version None)
Quarter: 2009Q2

REPORT INFORMATION
  Report Type: 
  Country: None (occurrence: None)
  Receive Date: 20090408
  Receipt Date: 20090402
  Transmission Date: 20091009
  Serious: Yes (Other)
  Sender: FDA-Public Use
  Company Number: MX-AVENTIS-200913436GDDC

PATIENT
  Age: 52 Year
  Sex: Female
  Weight: 79 kg

DRUGS (9)
  1. LANTUS [Suspect]
     Indication: TYPE 2 DIABETES MELLITUS
     Route: 058
     Dates: start: 20080901, end: 20090324
  2. LANTUS [Suspect]
     Route: 058
     Dates: start: 20090325
  3. SHORANT [Suspect]
     Indication: TYPE 1 DIABETES MELLITUS
     Route: 058
     Dates: start: 20080901, end: 20090324
  4. SHORANT [Suspect]
     Route: 058
     Dates: start: 20090325
  5. BISOPROLOL [Concomitant]
     Route: 048
     Dates: start: 20081001
  6. FUROSEMIDE [Concomitant]
     Route: 048
     Dates: start: 20081001
  7. CAPTOPRIL [Concomitant]
     Route: 048
     Dates: start: 20081001
  8. GLUCOVANCE                         /01503701/ [Concomitant]
     Indication: TYPE 2 DIABETES MELLITUS
     Dosage: DOSE: 250/1.25
     Route: 048
     Dates: start: 20081001
  9. DABEX XR [Concomitant]
     Indication: TYPE 2 DIABETES MELLITUS
     Route: 048
     Dates: start: 20081001

REACTIONS (3)
  - APPLICATION SITE IRRITATION [None]
  - MUSCULOSKELETAL DISCOMFORT [None]
  - WEIGHT INCREASED [None]
